FAERS Safety Report 4806902-6 (Version None)
Quarter: 2005Q4

REPORT INFORMATION
  Report Type: 
  Country: None (occurrence: None)
  Receive Date: 20051020
  Receipt Date: 20051020
  Transmission Date: 20060501
  Serious: Yes (Hospitalization)
  Sender: FDA-Public Use
  Company Number: None

PATIENT
  Age: 75 Year
  Sex: Male
  Weight: 52.8 kg

DRUGS (31)
  1. ENALAPRIL [Suspect]
  2. POTASSIUM CHLORIDE [Concomitant]
  3. PRAZOSIN HCL [Concomitant]
  4. TRIAMCINOLONE ACETONIDE [Concomitant]
  5. TRIAMCINOLONE [Concomitant]
  6. LORAZEPAM [Concomitant]
  7. DM 10/GUAIFENESN 100MG/5ML (ALC-F/SF) [Concomitant]
  8. NITROGLYCERIN [Concomitant]
  9. SODIUM POLYSTYRENE SULFONATE SUSP [Concomitant]
  10. CLONIDINE [Concomitant]
  11. LEVOFLOXACIN [Concomitant]
  12. PREDNISONE [Concomitant]
  13. CEFUROXIME [Concomitant]
  14. SILVER SULFADIAZINE [Concomitant]
  15. POLYVINYL ALCOHOL/SODIUM CHLORIDE [Concomitant]
  16. DORZOLAMIDE HCL [Concomitant]
  17. IPRATROPIUM BROMIDE [Concomitant]
  18. ALBUTEROL [Concomitant]
  19. METHYLPREDNISOLONE [Concomitant]
  20. TRIAMCINOLONE ACETONIDE [Concomitant]
  21. DM 10/GUAIF 100MG/5ML  (ALC/SUGAR FREE) [Concomitant]
  22. ENOXAPARIN SODIUM [Concomitant]
  23. OXYCODONE 5MG/ACETAMINOPHEN [Concomitant]
  24. TRAVOPROST [Concomitant]
  25. FORMOTEROL FUMARATE [Concomitant]
  26. CALCIUM CARBONATE [Concomitant]
  27. METAPROTERENOL [Concomitant]
  28. ACETAMINOPHEN [Concomitant]
  29. BUPROPION HCL [Concomitant]
  30. CEFTRIAXONE [Concomitant]
  31. AZITHROMYCIN [Concomitant]

REACTIONS (1)
  - HYPERKALAEMIA [None]
